FAERS Safety Report 17236208 (Version 1)
Quarter: 2020Q1

REPORT INFORMATION
  Report Type: Spontaneous
  Country: NL (occurrence: NL)
  Receive Date: 20200106
  Receipt Date: 20200106
  Transmission Date: 20200409
  Serious: Yes (Other)
  Sender: FDA-Public Use
  Company Number: NL-TEVA-2019-NL-1161850

PATIENT
  Age: 57 Year
  Sex: Female
  Weight: 68 kg

DRUGS (1)
  1. DOXYCYCLINE TABLET, 100 MG (MILLIGRAM) [Suspect]
     Active Substance: DOXYCYCLINE
     Indication: ARTHROPOD BITE
     Dosage: 1 A DAY 1 PIECE?100 MILLIGRAM
     Route: 065
     Dates: start: 20190604, end: 20190614

REACTIONS (3)
  - Headache [Recovered/Resolved with Sequelae]
  - Vitreous detachment [Recovered/Resolved with Sequelae]
  - Paraesthesia oral [Recovered/Resolved with Sequelae]

NARRATIVE: CASE EVENT DATE: 20190616
